FAERS Safety Report 8618162-9 (Version None)
Quarter: 2012Q3

REPORT INFORMATION
  Report Type: 
  Country: None (occurrence: None)
  Receive Date: 20120824
  Receipt Date: 20120327
  Transmission Date: 20120928
  Serious: Yes (Hospitalization)
  Sender: FDA-Public Use
  Company Number: US-ASTRAZENECA-2012SE20508

PATIENT
  Age: 55 Year
  Sex: Female

DRUGS (2)
  1. THREE DIFFERENT MEDICATION [Concomitant]
  2. SYMBICORT [Suspect]
     Indication: CHRONIC OBSTRUCTIVE PULMONARY DISEASE
     Dosage: ONE INHALATION , DAILY
     Route: 055

REACTIONS (2)
  - OFF LABEL USE [None]
  - HEADACHE [None]
